FAERS Safety Report 15772468 (Version 1)
Quarter: 2018Q4

REPORT INFORMATION
  Report Type: Spontaneous
  Country: US (occurrence: US)
  Receive Date: 20181228
  Receipt Date: 20181228
  Transmission Date: 20190205
  Serious: Yes (Hospitalization)
  Sender: FDA-Public Use
  Company Number: US-GLAXOSMITHKLINE-US2018GSK232746

PATIENT
  Age: 40 Year
  Sex: Female

DRUGS (5)
  1. LETAIRIS [Concomitant]
     Active Substance: AMBRISENTAN
  2. SILDENAFIL CITRATE. [Concomitant]
     Active Substance: SILDENAFIL CITRATE
  3. FLOLAN DILUENT PH 12 SOLUTION FOR INJECTION [Suspect]
     Active Substance: GLYCINE\MANNITOL\SODIUM CHLORIDE
     Indication: PULMONARY ARTERIAL HYPERTENSION
     Dosage: UNK, CO
     Route: 042
     Dates: start: 20160907
  4. FLOLAN [Suspect]
     Active Substance: EPOPROSTENOL SODIUM
     Indication: PULMONARY ARTERIAL HYPERTENSION
     Dosage: 32.4 DF, CO
     Route: 042
     Dates: start: 20150828
  5. COUMADIN [Concomitant]
     Active Substance: WARFARIN SODIUM

REACTIONS (2)
  - Haematoma [Unknown]
  - Catheterisation cardiac [Unknown]

NARRATIVE: CASE EVENT DATE: 20181221
